FAERS Safety Report 4366311-3 (Version None)
Quarter: 2004Q2

REPORT INFORMATION
  Report Type: 
  Country: None (occurrence: None)
  Receive Date: 20040526
  Receipt Date: 20040526
  Transmission Date: 20050107
  Serious: No
  Sender: FDA-Public Use
  Company Number: None

PATIENT
  Age: 90 Year
  Sex: Female
  Weight: 65.7716 kg

DRUGS (11)
  1. VENOFER [Suspect]
     Indication: ANAEMIA
     Dosage: 100 MG X 1 IV
     Route: 042
     Dates: start: 20040407
  2. TENORMIN [Concomitant]
  3. IRON SUCROSE [Concomitant]
  4. PREVACID [Concomitant]
  5. BISACODYL(DULCOLAX) [Concomitant]
  6. MAGNESIUM CITRATE [Concomitant]
  7. LEVOTHYROXINE SODIUM [Concomitant]
  8. PHYTONADIONE (SYNTHROID) [Concomitant]
  9. PANTOPRAZOLE [Concomitant]
  10. TYLENOL [Concomitant]
  11. MAGNESIUM HYDROX(MILK OF MAG) [Concomitant]

REACTIONS (3)
  - INJECTION SITE COLDNESS [None]
  - INJECTION SITE DISCOLOURATION [None]
  - INJECTION SITE SWELLING [None]
